FAERS Safety Report 5469029-9 (Version None)
Quarter: 2007Q3

REPORT INFORMATION
  Report Type: 
  Country: None (occurrence: None)
  Receive Date: 20070820
  Receipt Date: 20070511
  Transmission Date: 20080115
  Serious: No
  Sender: FDA-Public Use
  Company Number: WAES 0704USA04097

PATIENT
  Age: 71 Year
  Sex: Male
  Weight: 104.7809 kg

DRUGS (7)
  1. JANUVIA [Suspect]
     Indication: TYPE 2 DIABETES MELLITUS
     Dosage: 50 MG/DAILY/PO
     Route: 048
     Dates: start: 20061201, end: 20070428
  2. AMARYL [Concomitant]
  3. ATACAND [Concomitant]
  4. HUMALOG [Concomitant]
  5. LANTUS [Concomitant]
  6. LIPITOR [Concomitant]
  7. LOTENSIN [Concomitant]

REACTIONS (2)
  - DERMATITIS ALLERGIC [None]
  - PSORIASIS [None]
